FAERS Safety Report 7705177-8 (Version None)
Quarter: 2011Q3

REPORT INFORMATION
  Report Type: 
  Country: None (occurrence: None)
  Receive Date: 20110824
  Receipt Date: 20110818
  Transmission Date: 20111222
  Serious: Yes (Death)
  Sender: FDA-Public Use
  Company Number: IE-AMGEN-IRLSP2011030108

PATIENT
  Age: 82 Year
  Sex: Male

DRUGS (8)
  1. OMNEXEL [Concomitant]
  2. MYCOSTATIN [Concomitant]
  3. OXYCONTIN [Concomitant]
  4. ARANESP [Suspect]
     Indication: ANAEMIA OF MALIGNANT DISEASE
     Dosage: 500 A?G, Q3WK
     Route: 058
     Dates: start: 20091127, end: 20110610
  5. DEXAMETHASONE [Concomitant]
  6. ACETAMINOPHEN [Concomitant]
  7. MOTILIUM                           /00498201/ [Concomitant]
  8. ABIRATERONE ACETATE [Concomitant]

REACTIONS (1)
  - DISEASE PROGRESSION [None]
